FAERS Safety Report 5701116-X (Version None)
Quarter: 2008Q2

REPORT INFORMATION
  Report Type: 
  Country: None (occurrence: None)
  Receive Date: 20080410
  Receipt Date: 20080327
  Transmission Date: 20081010
  Serious: Yes (Hospitalization, Other)
  Sender: FDA-Public Use
  Company Number: US-AMGEN-QUU271440

PATIENT
  Sex: Female

DRUGS (2)
  1. ENBREL [Suspect]
     Indication: RHEUMATOID ARTHRITIS
     Route: 058
     Dates: start: 20071206
  2. PREDNISONE [Concomitant]

REACTIONS (2)
  - ATRIAL FIBRILLATION [None]
  - WHITE BLOOD CELL COUNT DECREASED [None]
